FAERS Safety Report 8113748-2 (Version None)
Quarter: 2012Q1

REPORT INFORMATION
  Report Type: 
  Country: None (occurrence: None)
  Receive Date: 20120203
  Receipt Date: 20120127
  Transmission Date: 20120608
  Serious: Yes (Other)
  Sender: FDA-Public Use
  Company Number: US-JNJFOC-20120112713

PATIENT
  Sex: Male
  Weight: 104.33 kg

DRUGS (8)
  1. COGENTIN [Concomitant]
     Route: 065
  2. MULTI-VITAMINS [Concomitant]
     Route: 065
  3. HALDOL [Suspect]
     Indication: BIPOLAR DISORDER
     Dosage: 100 MG+ 50 MG
     Route: 030
  4. INVEGA [Suspect]
     Indication: BIPOLAR DISORDER
     Route: 048
  5. HALDOL [Suspect]
     Indication: BIPOLAR I DISORDER
     Dosage: 100 MG+ 50 MG
     Route: 030
  6. VALPROIC ACID [Concomitant]
     Route: 065
  7. INVEGA [Suspect]
     Indication: BIPOLAR I DISORDER
     Route: 048
  8. PAXIL [Concomitant]
     Route: 065

REACTIONS (6)
  - OVERDOSE [None]
  - FATIGUE [None]
  - BRAIN INJURY [None]
  - GLUCOSE TOLERANCE IMPAIRED [None]
  - BOREDOM [None]
  - HYPERTENSION [None]
